FAERS Safety Report 5291240-0 (Version None)
Quarter: 2007Q2

REPORT INFORMATION
  Report Type: 
  Country: None (occurrence: None)
  Receive Date: 20070402
  Receipt Date: 20070320
  Transmission Date: 20071010
  Serious: Yes (Other)
  Sender: FDA-Public Use
  Company Number: 2006RR-04491

PATIENT
  Age: 36 Year
  Sex: Female
  Weight: 83 kg

DRUGS (5)
  1. FLUCONAZOLE [Suspect]
     Indication: VAGINAL CANDIDIASIS
     Dosage: 150 MG, ORAL
     Route: 048
     Dates: start: 20060814
  2. ERYTHROMYCIN FAMILY (ERYTHROMYCIN) [Concomitant]
  3. FLUCONAZOLE [Concomitant]
  4. SERTRALINE FAMILY (SERTRALINE) [Concomitant]
  5. TEMAZEPAM [Concomitant]

REACTIONS (2)
  - PHARYNGEAL OEDEMA [None]
  - SWOLLEN TONGUE [None]
